FAERS Safety Report 23284396 (Version 4)
Quarter: 2024Q1

REPORT INFORMATION
  Report Type: Spontaneous
  Country: US (occurrence: US)
  Receive Date: 20231211
  Receipt Date: 20240313
  Transmission Date: 20240410
  Serious: Yes (Death)
  Sender: FDA-Public Use
  Company Number: US-PFIZER INC-PV202300086749

PATIENT
  Age: 76 Year
  Sex: Male

DRUGS (1)
  1. BOSULIF [Suspect]
     Active Substance: BOSUTINIB MONOHYDRATE
     Indication: Chronic myeloid leukaemia (in remission)
     Dosage: 100 MG, 1X/DAY

REACTIONS (2)
  - Death [Fatal]
  - Tremor [Unknown]

NARRATIVE: CASE EVENT DATE: 20240307
